FAERS Safety Report 6704611-X (Version None)
Quarter: 2010Q2

REPORT INFORMATION
  Report Type: 
  Country: None (occurrence: None)
  Receive Date: 20100430
  Receipt Date: 20100423
  Transmission Date: 20101027
  Serious: Yes (Other)
  Sender: FDA-Public Use
  Company Number: GR-JNJFOC-20091100133

PATIENT
  Age: 52 Year
  Sex: Female

DRUGS (7)
  1. INVEGA [Suspect]
     Indication: PARANOIA
     Route: 048
  2. INVEGA [Suspect]
     Route: 048
  3. INVEGA [Suspect]
     Route: 048
  4. INVEGA [Suspect]
     Route: 048
  5. DISIPAL [Concomitant]
     Indication: DRUG USE FOR UNKNOWN INDICATION
     Route: 048
  6. DISIPAL [Concomitant]
     Route: 048
  7. DISIPAL [Concomitant]
     Route: 048

REACTIONS (5)
  - DYSPNOEA [None]
  - EXTRAPYRAMIDAL DISORDER [None]
  - MASTICATION DISORDER [None]
  - SPEECH DISORDER [None]
  - TARDIVE DYSKINESIA [None]
